FAERS Safety Report 5633063-6 (Version None)
Quarter: 2008Q1

REPORT INFORMATION
  Report Type: 
  Country: None (occurrence: None)
  Receive Date: 20080221
  Receipt Date: 20080206
  Transmission Date: 20080703
  Serious: Yes (Hospitalization, Other)
  Sender: FDA-Public Use
  Company Number: US-BAYER-200812900GPV

PATIENT
  Age: 48 Year
  Sex: Male

DRUGS (1)
  1. GADOLINIUM CONTRAST MEDIA [Suspect]
     Indication: MENTAL STATUS CHANGES
     Route: 065
     Dates: start: 20061215

REACTIONS (10)
  - ABDOMINAL ABSCESS [None]
  - HYPOTENSION [None]
  - JOINT RANGE OF MOTION DECREASED [None]
  - NEPHROGENIC SYSTEMIC FIBROSIS [None]
  - OEDEMA PERIPHERAL [None]
  - PAIN IN EXTREMITY [None]
  - RASH ERYTHEMATOUS [None]
  - RASH PAPULAR [None]
  - SKIN HYPERTROPHY [None]
  - SKIN INDURATION [None]
